FAERS Safety Report 26076493 (Version 2)
Quarter: 2025Q4

REPORT INFORMATION
  Report Type: Spontaneous
  Country: EU (occurrence: EU)
  Receive Date: 20251121
  Receipt Date: 20251128
  Transmission Date: 20260117
  Serious: Yes (Hospitalization, Other)
  Sender: MERCK SHARP & DOHME LLC
  Company Number: EU-009507513-2351135

PATIENT
  Age: 59 Year
  Sex: Male

DRUGS (8)
  1. SOTATERCEPT [Suspect]
     Active Substance: SOTATERCEPT
     Indication: Pulmonary arterial hypertension
     Dosage: UNK, FIRST INJECTION
     Route: 065
     Dates: start: 20250728, end: 20250728
  2. SOTATERCEPT [Suspect]
     Active Substance: SOTATERCEPT
     Dosage: RESTARTED AT A DOSE OF 0.3 MG/KG
     Route: 065
     Dates: start: 20251022, end: 20251022
  3. SOTATERCEPT [Suspect]
     Active Substance: SOTATERCEPT
     Dosage: 0.7 MG/KG
     Route: 065
     Dates: start: 20251112
  4. SOTATERCEPT [Suspect]
     Active Substance: SOTATERCEPT
     Dosage: UNK, SECOND INJECTION
     Route: 065
     Dates: start: 20250818, end: 20250818
  5. ELIQUIS [Concomitant]
     Active Substance: APIXABAN
     Indication: Atrial fibrillation
  6. VELETRI [Suspect]
     Active Substance: EPOPROSTENOL
     Indication: Pulmonary arterial hypertension
     Dosage: UNK
  7. BOSENTAN [Concomitant]
     Active Substance: BOSENTAN
     Indication: Pulmonary arterial hypertension
  8. TADALAFIL [Concomitant]
     Active Substance: TADALAFIL
     Indication: Pulmonary arterial hypertension

REACTIONS (8)
  - Portal hypertensive gastropathy [Recovered/Resolved]
  - Diarrhoea [Unknown]
  - Gastrooesophageal sphincter insufficiency [Unknown]
  - Pancreatic calcification [Unknown]
  - Iron deficiency anaemia [Recovered/Resolved]
  - Dilatation intrahepatic duct acquired [Unknown]
  - Gastrointestinal haemorrhage [Recovered/Resolved]
  - Oesophagitis [Recovered/Resolved]

NARRATIVE: CASE EVENT DATE: 20250101
